FAERS Safety Report 24344460 (Version 1)
Quarter: 2024Q3

REPORT INFORMATION
  Report Type: Spontaneous
  Country: US (occurrence: None)
  Receive Date: 20240920
  Receipt Date: 20240920
  Transmission Date: 20241016
  Serious: Yes (Other)
  Sender: Public
  Company Number: None

PATIENT
  Age: 73 Year
  Sex: Female

DRUGS (6)
  1. RETEVMO [Suspect]
     Active Substance: SELPERCATINIB
     Indication: Lung neoplasm malignant
     Dosage: FREQUENCY : TWICE A DAY;?
     Route: 048
     Dates: start: 20240314
  2. ATORVASTATIN [Concomitant]
     Active Substance: ATORVASTATIN
  3. CARVEDILOL [Concomitant]
     Active Substance: CARVEDILOL
  4. MIRTAZAPINE [Concomitant]
     Active Substance: MIRTAZAPINE
  5. TYLENOL [Concomitant]
     Active Substance: ACETAMINOPHEN
  6. DEXAMETHASONE [Concomitant]
     Active Substance: DEXAMETHASONE

REACTIONS (2)
  - Diarrhoea [None]
  - Wound secretion [None]

NARRATIVE: CASE EVENT DATE: 20240830
